FAERS Safety Report 19189092 (Version 1)
Quarter: 2021Q2

REPORT INFORMATION
  Report Type: Spontaneous
  Country: US (occurrence: US)
  Receive Date: 20210427
  Receipt Date: 20210427
  Transmission Date: 20210717
  Serious: No
  Sender: FDA-Public Use
  Company Number: None

PATIENT
  Age: 69 Year
  Sex: Male

DRUGS (5)
  1. ACYCLOVIR 400MG [Concomitant]
     Active Substance: ACYCLOVIR
     Dates: start: 20210101
  2. ASPIRIN 81MG [Concomitant]
     Active Substance: ASPIRIN
     Dates: start: 20210101
  3. DEXAMETHASONE 4MG [Concomitant]
     Active Substance: DEXAMETHASONE
     Dates: start: 20210107
  4. REVLIMID [Suspect]
     Active Substance: LENALIDOMIDE
     Indication: PLASMA CELL MYELOMA
     Route: 048
     Dates: start: 20201231, end: 20210325
  5. SULFAMETHOXAZOLE/TRIMETHOPRIM 800/600MG [Concomitant]
     Dates: start: 20210107

REACTIONS (4)
  - Paraesthesia [None]
  - Muscle spasms [None]
  - Peripheral swelling [None]
  - Therapy change [None]

NARRATIVE: CASE EVENT DATE: 20210325
